FAERS Safety Report 20603096 (Version 1)
Quarter: 2022Q1

REPORT INFORMATION
  Report Type: Report from Study
  Country: US (occurrence: US)
  Receive Date: 20220316
  Receipt Date: 20220316
  Transmission Date: 20220423
  Serious: Yes (Other)
  Sender: FDA-Public Use
  Company Number: US-ABBVIE-21K-163-3972666-00

PATIENT
  Sex: Male

DRUGS (3)
  1. HUMIRA [Suspect]
     Active Substance: ADALIMUMAB
     Indication: Colitis ulcerative
     Route: 058
     Dates: start: 20210524, end: 20210524
  2. HUMIRA [Suspect]
     Active Substance: ADALIMUMAB
     Indication: Colitis ulcerative
     Route: 058
     Dates: start: 20210621
  3. HUMIRA [Suspect]
     Active Substance: ADALIMUMAB
     Indication: Colitis ulcerative
     Route: 058
     Dates: start: 202111

REACTIONS (24)
  - Pulmonary thrombosis [Unknown]
  - Fatigue [Recovered/Resolved]
  - Mucous stools [Not Recovered/Not Resolved]
  - Device issue [Unknown]
  - Loss of personal independence in daily activities [Not Recovered/Not Resolved]
  - Defaecation urgency [Not Recovered/Not Resolved]
  - Flatulence [Not Recovered/Not Resolved]
  - Insomnia [Not Recovered/Not Resolved]
  - Depressed mood [Not Recovered/Not Resolved]
  - Haematochezia [Not Recovered/Not Resolved]
  - Injection site pain [Unknown]
  - Arthralgia [Not Recovered/Not Resolved]
  - Nausea [Recovered/Resolved]
  - Muscle spasms [Recovered/Resolved]
  - Diarrhoea [Not Recovered/Not Resolved]
  - COVID-19 [Unknown]
  - Peripheral coldness [Unknown]
  - Hyperhidrosis [Unknown]
  - Malaise [Not Recovered/Not Resolved]
  - Frequent bowel movements [Recovering/Resolving]
  - Abdominal pain [Not Recovered/Not Resolved]
  - Muscle spasms [Not Recovered/Not Resolved]
  - Fatigue [Not Recovered/Not Resolved]
  - Nausea [Not Recovered/Not Resolved]

NARRATIVE: CASE EVENT DATE: 20210101
